FAERS Safety Report 4733344-4 (Version None)
Quarter: 2005Q3

REPORT INFORMATION
  Report Type: 
  Country: None (occurrence: None)
  Receive Date: 20050801
  Receipt Date: 20050801
  Transmission Date: 20060218
  Serious: Yes (Hospitalization)
  Sender: FDA-Public Use
  Company Number: None

PATIENT
  Age: 50 Year
  Sex: Male
  Weight: 104.3273 kg

DRUGS (1)
  1. DICLOFENAC 75 MG [Suspect]
     Indication: ARTHRALGIA
     Dosage: 75 MG BID
     Dates: start: 20050411, end: 20050531

REACTIONS (1)
  - RENAL FAILURE ACUTE [None]
